FAERS Safety Report 17284790 (Version 1)
Quarter: 2020Q1

REPORT INFORMATION
  Report Type: Report from Study
  Country: None (occurrence: US)
  Receive Date: 20200117
  Receipt Date: 20200117
  Transmission Date: 20200409
  Serious: Yes (Hospitalization, Other)
  Sender: FDA-Public Use
  Company Number: US-ABBVIE-19P-163-3189565-00

PATIENT
  Sex: Female

DRUGS (1)
  1. RINVOQ [Suspect]
     Active Substance: UPADACITINIB
     Indication: RHEUMATOID ARTHRITIS
     Route: 048

REACTIONS (7)
  - Oral mucosal exfoliation [Recovered/Resolved]
  - Stomatitis [Unknown]
  - Gingival pain [Unknown]
  - Oral mucosal erythema [Unknown]
  - Palatal disorder [Unknown]
  - Oral pain [Unknown]
  - Gingival erythema [Unknown]
